FAERS Safety Report 21996082 (Version 1)
Quarter: 2023Q1

REPORT INFORMATION
  Report Type: Spontaneous
  Country: None (occurrence: US)
  Receive Date: 20230215
  Receipt Date: 20230215
  Transmission Date: 20230417
  Serious: No
  Sender: FDA-Public Use
  Company Number: US-Breckenridge Pharmaceutical, Inc.-2138003

PATIENT
  Sex: Female

DRUGS (1)
  1. ASENAPINE MALEATE [Suspect]
     Active Substance: ASENAPINE MALEATE
     Route: 060

REACTIONS (5)
  - Therapeutic product effect incomplete [Unknown]
  - Oral mucosal blistering [Unknown]
  - Hypoaesthesia oral [Unknown]
  - Tongue discomfort [Unknown]
  - Product substitution issue [Unknown]
